FAERS Safety Report 4520412-5 (Version None)
Quarter: 2004Q4

REPORT INFORMATION
  Report Type: 
  Country: None (occurrence: None)
  Receive Date: 20041206
  Receipt Date: 20041206
  Transmission Date: 20050328
  Serious: No
  Sender: FDA-Public Use
  Company Number: None

PATIENT
  Age: 92 Year
  Sex: Female
  Weight: 54.4316 kg

DRUGS (2)
  1. BEXTRA [Suspect]
     Indication: ARTHRITIS
     Dosage: 1PILL  DAY  ORAL
     Route: 048
     Dates: start: 20041025, end: 20041115
  2. BEXTRA [Suspect]
     Indication: BACK PAIN
     Dosage: 1PILL  DAY  ORAL
     Route: 048
     Dates: start: 20041025, end: 20041115

REACTIONS (1)
  - URTICARIA [None]
